FAERS Safety Report 10248665 (Version 1)
Quarter: 2014Q2

REPORT INFORMATION
  Report Type: Spontaneous
  Country: US (occurrence: None)
  Receive Date: 20140617
  Receipt Date: 20140617
  Transmission Date: 20141212
  Serious: No
  Sender: FDA-Public Use
  Company Number: None

PATIENT
  Age: 77 Year
  Sex: Female

DRUGS (1)
  1. RITUXAN [Suspect]

REACTIONS (7)
  - Back pain [None]
  - Headache [None]
  - Chills [None]
  - Dyspnoea [None]
  - Wheezing [None]
  - Body temperature increased [None]
  - Heart rate increased [None]
